FAERS Safety Report 10017158 (Version 1)
Quarter: 2014Q1

REPORT INFORMATION
  Report Type: Spontaneous
  Country: US (occurrence: US)
  Receive Date: 20140318
  Receipt Date: 20140318
  Transmission Date: 20141002
  Serious: Yes (Other)
  Sender: FDA-Public Use
  Company Number: US-AMGEN-USASP2014017464

PATIENT
  Age: 85 Year
  Sex: Female

DRUGS (8)
  1. PROLIA [Suspect]
     Indication: OSTEOPOROSIS
     Dosage: 60 MG, UNK
     Route: 065
  2. CALCITRIOL [Concomitant]
  3. CRESTOR [Concomitant]
  4. ZETIA [Concomitant]
  5. IPRATROPIUM                        /00391402/ [Concomitant]
  6. XALATAN [Concomitant]
  7. SYNTHROID [Concomitant]
  8. VITAMINS                           /00067501/ [Concomitant]

REACTIONS (6)
  - Bone loss [Unknown]
  - Groin pain [Unknown]
  - Pain [Unknown]
  - Body height decreased [Unknown]
  - Arthralgia [Unknown]
  - Pain in extremity [Unknown]
